FAERS Safety Report 25488609 (Version 1)
Quarter: 2025Q2

REPORT INFORMATION
  Report Type: Spontaneous
  Country: US (occurrence: US)
  Receive Date: 20250627
  Receipt Date: 20250627
  Transmission Date: 20250717
  Serious: Yes (Other)
  Sender: TEVA
  Company Number: US-TEVA-VS-3345789

PATIENT

DRUGS (1)
  1. MEGESTROL ACETATE [Suspect]
     Active Substance: MEGESTROL ACETATE
     Indication: Product used for unknown indication
     Route: 048

REACTIONS (8)
  - Impaired quality of life [Unknown]
  - Dyspnoea [Not Recovered/Not Resolved]
  - Nausea [Recovering/Resolving]
  - Prescription drug used without a prescription [Unknown]
  - Decreased appetite [Unknown]
  - Malaise [Unknown]
  - Asthenia [Unknown]
  - Fatigue [Not Recovered/Not Resolved]
